FAERS Safety Report 11185868 (Version 3)
Quarter: 2015Q3

REPORT INFORMATION
  Report Type: Spontaneous
  Country: US (occurrence: US)
  Receive Date: 20150612
  Receipt Date: 20150810
  Transmission Date: 20151125
  Serious: Yes (Other)
  Sender: FDA-Public Use
  Company Number: US-GLAXOSMITHKLINE-US2015081978

PATIENT
  Age: 66 Year
  Sex: Female

DRUGS (16)
  1. ADVAIR HFA [Suspect]
     Active Substance: FLUTICASONE PROPIONATE\SALMETEROL XINAFOATE
     Dosage: 1 PUFF(S), BID
     Route: 055
     Dates: start: 20150610
  2. TYLENOL [Concomitant]
     Active Substance: ACETAMINOPHEN
  3. LATANOPROST. [Concomitant]
     Active Substance: LATANOPROST
  4. FUROSEMIDE. [Concomitant]
     Active Substance: FUROSEMIDE
  5. CITALOPRAM [Concomitant]
     Active Substance: CITALOPRAM HYDROBROMIDE
  6. LORAZEPAM. [Concomitant]
     Active Substance: LORAZEPAM
  7. REQUIP [Suspect]
     Active Substance: ROPINIROLE HYDROCHLORIDE
     Indication: RESTLESS LEGS SYNDROME
     Dosage: 1 MG, QID
     Route: 048
  8. PRILOSEC OTC [Concomitant]
     Active Substance: OMEPRAZOLE MAGNESIUM
  9. LORATADINE. [Concomitant]
     Active Substance: LORATADINE
  10. PREDNISONE. [Concomitant]
     Active Substance: PREDNISONE
  11. PROVENTIL HFA [Concomitant]
     Active Substance: ALBUTEROL SULFATE
  12. LISINOPRIL. [Concomitant]
     Active Substance: LISINOPRIL
  13. FLONASE [Concomitant]
     Active Substance: FLUTICASONE PROPIONATE
  14. ADVAIR HFA [Suspect]
     Active Substance: FLUTICASONE PROPIONATE\SALMETEROL XINAFOATE
     Indication: ASTHMA
     Dosage: 2 PUFF(S), BID
     Route: 055
     Dates: start: 20150402, end: 20150610
  15. TRAMADOL. [Concomitant]
     Active Substance: TRAMADOL
  16. TRAZODONE [Concomitant]
     Active Substance: TRAZODONE HYDROCHLORIDE

REACTIONS (9)
  - Laryngitis [Recovering/Resolving]
  - Underdose [Not Recovered/Not Resolved]
  - Nasopharyngitis [Not Recovered/Not Resolved]
  - Dysphonia [Recovering/Resolving]
  - Bronchitis [Unknown]
  - Throat irritation [Recovering/Resolving]
  - Seasonal allergy [Unknown]
  - Sinus operation [Unknown]
  - Cough [Recovering/Resolving]

NARRATIVE: CASE EVENT DATE: 201503
